FAERS Safety Report 7593566-4 (Version None)
Quarter: 2011Q2

REPORT INFORMATION
  Report Type: 
  Country: None (occurrence: None)
  Receive Date: 20110610
  Receipt Date: 20110124
  Transmission Date: 20111010
  Serious: Yes (Hospitalization)
  Sender: FDA-Public Use
  Company Number: SOLV00211000680

PATIENT
  Age: 33 Year
  Sex: Female
  Weight: 59.09 kg

DRUGS (3)
  1. PROMETRIUM [Suspect]
     Indication: ENDOMETRIOSIS
     Dosage: 200 MILLIGRAM(S) QD UNKNOWN DAILY DOSE: 200 MILLIGRAM(S)
     Dates: start: 20080101, end: 20110101
  2. VIVELLE DOR (ESTRADIOL) [Concomitant]
  3. PROGESTERONE [Concomitant]

REACTIONS (4)
  - ABDOMINAL PAIN [None]
  - ABDOMINAL DISTENSION [None]
  - CHEST PAIN [None]
  - MUSCULOSKELETAL PAIN [None]
